FAERS Safety Report 6936254-7 (Version None)
Quarter: 2010Q3

REPORT INFORMATION
  Report Type: 
  Country: None (occurrence: None)
  Receive Date: 20100823
  Receipt Date: 20100813
  Transmission Date: 20110219
  Serious: Yes (Other)
  Sender: FDA-Public Use
  Company Number: MY-PFIZER INC-2010097500

PATIENT
  Age: 52 Year
  Sex: Female

DRUGS (3)
  1. CADUET [Suspect]
     Indication: HYPERTENSION
     Dosage: 10 MG/10 MG, UNK
     Dates: start: 20100730, end: 20100802
  2. CADUET [Suspect]
     Indication: BLOOD CHOLESTEROL INCREASED
  3. TENORMIN [Concomitant]
     Dosage: 100 MG, UNK

REACTIONS (3)
  - FACE OEDEMA [None]
  - HYPOAESTHESIA [None]
  - OEDEMA PERIPHERAL [None]
